FAERS Safety Report 4545932-9 (Version None)
Quarter: 2005Q1

REPORT INFORMATION
  Report Type: 
  Country: None (occurrence: None)
  Receive Date: 20050106
  Receipt Date: 20041229
  Transmission Date: 20050727
  Serious: Yes (Death)
  Sender: FDA-Public Use
  Company Number: US-BRISTOL-MYERS SQUIBB COMPANY-12808861

PATIENT
  Age: 65 Year
  Sex: Male

DRUGS (1)
  1. MEGACE [Suspect]
     Dosage: 8 FLUID OUNCE BOTTLE.  LIST NUMBER:  050802
     Route: 048

REACTIONS (1)
  - DEATH [None]
